FAERS Safety Report 8362003-4 (Version None)
Quarter: 2012Q2

REPORT INFORMATION
  Report Type: 
  Country: None (occurrence: None)
  Receive Date: 20120515
  Receipt Date: 20120510
  Transmission Date: 20120825
  Serious: Yes (Other)
  Sender: FDA-Public Use
  Company Number: AU-PFIZER INC-2012072739

PATIENT
  Age: 29 Year
  Sex: Female

DRUGS (1)
  1. PRISTIQ [Suspect]
     Indication: DEPRESSION
     Dosage: 150 MG DAILY
     Route: 048

REACTIONS (5)
  - BLOOD PRESSURE DIASTOLIC INCREASED [None]
  - CONJUNCTIVAL HAEMORRHAGE [None]
  - CONTUSION [None]
  - GINGIVAL BLEEDING [None]
  - MYDRIASIS [None]
